FAERS Safety Report 22525764 (Version 1)
Quarter: 2023Q2

REPORT INFORMATION
  Report Type: Spontaneous
  Country: KR (occurrence: KR)
  Receive Date: 20230606
  Receipt Date: 20230606
  Transmission Date: 20230722
  Serious: Yes (Hospitalization)
  Sender: FDA-Public Use
  Company Number: KR-ORGANON-O2305KOR003150

PATIENT
  Sex: Female
  Weight: 68.55 kg

DRUGS (12)
  1. COZAAR [Suspect]
     Active Substance: LOSARTAN POTASSIUM
     Indication: Essential hypertension
     Dosage: 50 MILLIGRAM, 1 DAY; FORMULATION: FILM-COATED TABLETS
     Route: 048
  2. LERCANIDIPINE HYDROCHLORIDE [Concomitant]
     Active Substance: LERCANIDIPINE HYDROCHLORIDE
     Indication: Essential hypertension
     Dosage: 10 MILLIGRAM, 1 DAY
     Route: 048
  3. PREGABALIN [Concomitant]
     Active Substance: PREGABALIN
     Indication: Back pain
     Dosage: 75 MILLIGRAM, 1 DAY; FORMULATION: HARD CAPSULES, POWDER
     Route: 048
     Dates: start: 20171115
  4. MAGNESIUM OXIDE [Concomitant]
     Active Substance: MAGNESIUM OXIDE
     Indication: Prophylaxis
     Dosage: 500 MILLIGRAM, 0.5 DAY; FORMULATION: HARD CAPSULES, POWDER
     Route: 048
     Dates: start: 20180521
  5. BROMELAINS;DIMETICONE;PANCREATIN [Concomitant]
     Indication: Prophylaxis
     Dosage: 1 FORMULATION, 0.33 DAY; ENTERIC COATED FILM-COATED TABLET
     Route: 048
     Dates: start: 20180524
  6. LACTULOSE [Concomitant]
     Active Substance: LACTULOSE
     Indication: Prophylaxis
     Dosage: 1 DOSAGE FORM, 0.5 DAY; FORMULATION: LIQUID SYRUP
     Route: 048
     Dates: start: 20180524
  7. ROSUVASTATIN CALCIUM [Concomitant]
     Active Substance: ROSUVASTATIN CALCIUM
     Indication: Hyperlipidaemia
     Dosage: UNK
     Route: 048
     Dates: start: 20180618
  8. METFORMIN HYDROCHLORIDE [Concomitant]
     Active Substance: METFORMIN HYDROCHLORIDE
     Indication: Diabetes mellitus
     Dosage: 500 MILLIGRAM, 1 DAY
     Route: 048
     Dates: start: 20180616
  9. GABAPENTIN [Concomitant]
     Active Substance: GABAPENTIN
     Dosage: 100 MILLIGRAM, 0.33 DAY; FORMULATION: HARD CAPSULES, POWDER
     Route: 048
     Dates: start: 20180619
  10. CLINDAMYCIN HYDROCHLORIDE [Concomitant]
     Active Substance: CLINDAMYCIN HYDROCHLORIDE
     Indication: Subcutaneous abscess
     Dosage: 150 MILLIGRAM, 0.33 DAY; FORMULATION: HARD CAPSULES, POWDER
     Route: 048
     Dates: start: 20180704, end: 20180709
  11. CLINDAMYCIN HYDROCHLORIDE [Concomitant]
     Active Substance: CLINDAMYCIN HYDROCHLORIDE
     Indication: Furuncle
  12. CLINDAMYCIN HYDROCHLORIDE [Concomitant]
     Active Substance: CLINDAMYCIN HYDROCHLORIDE
     Indication: Carbuncle

REACTIONS (1)
  - Spinal cord compression [Recovering/Resolving]

NARRATIVE: CASE EVENT DATE: 20180710
